FAERS Safety Report 4269384-1 (Version None)
Quarter: 2004Q1

REPORT INFORMATION
  Report Type: 
  Country: None (occurrence: None)
  Receive Date: 20040113
  Receipt Date: 20040106
  Transmission Date: 20041129
  Serious: Yes (Hospitalization)
  Sender: FDA-Public Use
  Company Number: WAES 0401USA00141

PATIENT
  Age: 77 Year
  Sex: Male

DRUGS (7)
  1. KARDEGIC [Suspect]
     Dates: start: 20031006, end: 20031128
  2. LEXOMIL [Concomitant]
     Route: 048
     Dates: end: 20031128
  3. ROCEPHIN [Suspect]
     Route: 042
     Dates: start: 20031027, end: 20031128
  4. LASILIX [Suspect]
     Dates: start: 20031016, end: 20031028
  5. OFLOCET [Suspect]
     Route: 042
     Dates: start: 20031027, end: 20031128
  6. ZOCOR [Suspect]
     Indication: DYSLIPIDAEMIA
     Route: 048
     Dates: start: 20031006, end: 20031128
  7. IMOVANE [Suspect]
     Route: 048
     Dates: start: 20031006, end: 20031128

REACTIONS (1)
  - GRANULOCYTOPENIA [None]
